FAERS Safety Report 8847680 (Version 2)
Quarter: 2012Q4

REPORT INFORMATION
  Report Type: 
  Country: FR (occurrence: FR)
  Receive Date: 20121018
  Receipt Date: 20121024
  Transmission Date: 20130627
  Serious: Yes (Death)
  Sender: FDA-Public Use
  Company Number: FR-UCBSA-068870

PATIENT
  Age: 59 Year
  Sex: Male

DRUGS (3)
  1. KEPPRA [Suspect]
     Dosage: FOR ONE WEEK
     Route: 048
  2. KEPPRA [Suspect]
     Dosage: FOR ONE WEEK
     Route: 048
  3. KEPPRA [Suspect]
     Route: 048

REACTIONS (1)
  - Sudden death [Fatal]
